FAERS Safety Report 13055519 (Version 1)
Quarter: 2016Q4

REPORT INFORMATION
  Report Type: Spontaneous
  Country: FR (occurrence: FR)
  Receive Date: 20161222
  Receipt Date: 20161222
  Transmission Date: 20170207
  Serious: Yes (Hospitalization, Other)
  Sender: FDA-Public Use
  Company Number: FR-MALLINCKRODT-T201606637

PATIENT
  Age: 19 Year
  Sex: Male

DRUGS (13)
  1. ROPIVACAINE HYDROCHLORIDE. [Suspect]
     Active Substance: ROPIVACAINE HYDROCHLORIDE
     Indication: PRODUCT USED FOR UNKNOWN INDICATION
     Dosage: UNK
     Route: 014
     Dates: start: 20161027
  2. TOPALGIC [Concomitant]
     Active Substance: TRAMADOL
  3. LOVENOX [Concomitant]
     Active Substance: ENOXAPARIN SODIUM
  4. OFIRMEV [Suspect]
     Active Substance: ACETAMINOPHEN
     Indication: PRODUCT USED FOR UNKNOWN INDICATION
     Dosage: UNK
     Route: 042
     Dates: start: 20161027
  5. PROPOFOL. [Concomitant]
     Active Substance: PROPOFOL
  6. FELDENE [Concomitant]
     Active Substance: PIROXICAM
  7. DAFALGAN CODEINE [Suspect]
     Active Substance: ACETAMINOPHEN\CODEINE PHOSPHATE
     Indication: PRODUCT USED FOR UNKNOWN INDICATION
     Dosage: UNK
     Route: 048
     Dates: start: 20161028, end: 20161102
  8. KETAMINE [Concomitant]
     Active Substance: KETAMINE
  9. ACUPAN [Concomitant]
     Active Substance: NEFOPAM HYDROCHLORIDE
  10. MORPHINE [Concomitant]
     Active Substance: MORPHINE
  11. MOPRAL [Concomitant]
     Active Substance: OMEPRAZOLE SODIUM
  12. DEXAMETHASONE. [Concomitant]
     Active Substance: DEXAMETHASONE
  13. ULTIVA [Concomitant]
     Active Substance: REMIFENTANIL HYDROCHLORIDE

REACTIONS (2)
  - Haemolytic anaemia [Recovered/Resolved]
  - Packed red blood cell transfusion [Recovered/Resolved]

NARRATIVE: CASE EVENT DATE: 20161102
